FAERS Safety Report 7547335-1 (Version None)
Quarter: 2011Q2

REPORT INFORMATION
  Report Type: 
  Country: None (occurrence: None)
  Receive Date: 20110614
  Receipt Date: 20110606
  Transmission Date: 20111010
  Serious: Yes (Other)
  Sender: FDA-Public Use
  Company Number: US-US-EMD SERONO, INC.-7062731

PATIENT
  Sex: Female
  Weight: 82 kg

DRUGS (7)
  1. REBIF [Suspect]
     Indication: MULTIPLE SCLEROSIS
     Route: 058
     Dates: start: 20110202
  2. LEVOTHYROXINE SODIUM [Concomitant]
     Indication: THYROID DISORDER
  3. ANTIVERT [Concomitant]
     Indication: VERTIGO
  4. CYMBALTA [Concomitant]
     Indication: DEPRESSION
  5. HYDROCODONE BITARTRATE [Concomitant]
     Indication: NEURALGIA
  6. NEURONTIN [Concomitant]
     Indication: NEURALGIA
  7. CLONAZEPAM [Concomitant]
     Indication: SLEEP DISORDER

REACTIONS (16)
  - DYSPNOEA [None]
  - LYMPHADENOPATHY [None]
  - FATIGUE [None]
  - GALLBLADDER DISORDER [None]
  - CHILLS [None]
  - INJECTION SITE HAEMATOMA [None]
  - TONGUE COATED [None]
  - ASTHENIA [None]
  - URTICARIA [None]
  - GASTROOESOPHAGEAL REFLUX DISEASE [None]
  - WEIGHT DECREASED [None]
  - DECREASED APPETITE [None]
  - DYSGEUSIA [None]
  - PRURITUS GENERALISED [None]
  - PYREXIA [None]
  - INJECTION SITE ERYTHEMA [None]
